FAERS Safety Report 12431583 (Version 1)
Quarter: 2016Q2

REPORT INFORMATION
  Report Type: Spontaneous
  Country: US (occurrence: None)
  Receive Date: 20160602
  Receipt Date: 20160602
  Transmission Date: 20160815
  Serious: Yes (Other)
  Sender: FDA-Public Use
  Company Number: None

PATIENT
  Age: 66 Year
  Sex: Female
  Weight: 70.31 kg

DRUGS (5)
  1. PRAVISTATIN [Concomitant]
  2. LISINOPRIL, 10 MG ACCORD [Suspect]
     Active Substance: LISINOPRIL
     Indication: HYPERTENSION
     Route: 048
     Dates: start: 20160527, end: 20160601
  3. METHOTREXATE [Concomitant]
     Active Substance: METHOTREXATE
  4. PREDNISONE. [Concomitant]
     Active Substance: PREDNISONE
  5. PLAQUINIL [Concomitant]

REACTIONS (2)
  - Poor quality drug administered [None]
  - Product quality issue [None]

NARRATIVE: CASE EVENT DATE: 20160601
